FAERS Safety Report 8961301 (Version 1)
Quarter: 2012Q4

REPORT INFORMATION
  Report Type: 
  Country: CA (occurrence: CA)
  Receive Date: 20121213
  Receipt Date: 20121213
  Transmission Date: 20130627
  Serious: Yes (Hospitalization, Other)
  Sender: FDA-Public Use
  Company Number: CA-BAYER-2011-064375

PATIENT
  Age: 21 Year
  Sex: Female
  Weight: 77 kg

DRUGS (2)
  1. YASMIN [Suspect]
     Indication: BIRTH CONTROL
     Dosage: 1 DF, QD
     Route: 048
     Dates: end: 2007
  2. ADVIL [Concomitant]

REACTIONS (8)
  - Abdominal pain upper [Recovered/Resolved]
  - Anxiety [Recovered/Resolved]
  - Chest pain [Recovered/Resolved]
  - Cholelithiasis [Recovered/Resolved]
  - Depression [Recovered/Resolved]
  - Dyspnoea [Recovered/Resolved]
  - Headache [Recovered/Resolved]
  - Panic attack [Recovered/Resolved]
